FAERS Safety Report 11150196 (Version 2)
Quarter: 2020Q2

REPORT INFORMATION
  Report Type: Spontaneous
  Country: DE (occurrence: DE)
  Receive Date: 20150529
  Receipt Date: 20200603
  Transmission Date: 20200713
  Serious: Yes (Congenital Anomaly)
  Sender: FDA-Public Use
  Company Number: GXKR2015DE002585

PATIENT
  Age: 8 Month
  Sex: Male
  Weight: 2.87 kg

DRUGS (6)
  1. LEVETIRACETAM. [Suspect]
     Active Substance: LEVETIRACETAM
     Indication: FOETAL EXPOSURE DURING PREGNANCY
     Dosage: MATERNAL DOSE: 1000 MG MILLIGRAM(S) EVERY DAY(MOTHER DOSE)
     Route: 064
     Dates: start: 20131123, end: 20140818
  2. JODID [Concomitant]
     Active Substance: IODINE
     Indication: FOETAL EXPOSURE DURING PREGNANCY
     Dosage: UNK  (MOTHER DOSE)
     Route: 064
  3. IRON [Concomitant]
     Active Substance: IRON
     Indication: FOETAL EXPOSURE DURING PREGNANCY
     Dosage: (MOTHER DOSE)
     Route: 064
  4. TOPIRAMATE. [Suspect]
     Active Substance: TOPIRAMATE
     Indication: FOETAL EXPOSURE DURING PREGNANCY
     Dosage: MATERNAL DOSE: 25 MG MILLIGRAM(S) EVERY DAY) (MOTHER DOSE)(0 TO 38.2 GESTATIONAL WEEK)
     Route: 064
     Dates: start: 20131123, end: 20140818
  5. ASPIRIN. [Concomitant]
     Active Substance: ASPIRIN
     Indication: FOETAL EXPOSURE DURING PREGNANCY
     Dosage: UNK (DAILY DOSE: 100 MG MILLIGRAM(S) EVERY DAY)(MOTHER DOSE)
     Route: 064
     Dates: start: 20131123, end: 20140818
  6. FERRIC SULFATE [Concomitant]
     Active Substance: FERRIC SULFATE
     Indication: FOETAL EXPOSURE DURING PREGNANCY
     Dosage: UNK (MOTHER DOSE)
     Route: 064

REACTIONS (2)
  - Dysmorphism [Not Recovered/Not Resolved]
  - Foetal exposure during pregnancy [Unknown]

NARRATIVE: CASE EVENT DATE: 20131207
